FAERS Safety Report 8555500-X (Version None)
Quarter: 2012Q3

REPORT INFORMATION
  Report Type: 
  Country: None (occurrence: None)
  Receive Date: 20120731
  Receipt Date: 20110824
  Transmission Date: 20120928
  Serious: No
  Sender: FDA-Public Use
  Company Number: US-ASTRAZENECA-2011SE21944

PATIENT
  Age: 57 Year
  Sex: Male
  Weight: 77.1 kg

DRUGS (4)
  1. SEROQUEL [Suspect]
     Indication: BIPOLAR DISORDER
     Route: 048
     Dates: start: 20110601, end: 20110812
  2. ZINEX [Concomitant]
     Indication: SLEEP DISORDER
  3. CAMEPIN [Concomitant]
  4. WELLBUGRIN [Concomitant]
     Indication: DEPRESSION

REACTIONS (4)
  - MALAISE [None]
  - DRUG DOSE OMISSION [None]
  - MUSCLE SPASMS [None]
  - INSOMNIA [None]
